FAERS Safety Report 14625869 (Version 4)
Quarter: 2018Q1

REPORT INFORMATION
  Report Type: Report from Study
  Country: US (occurrence: US)
  Receive Date: 20180312
  Receipt Date: 20180322
  Transmission Date: 20180509
  Serious: Yes (Hospitalization)
  Sender: FDA-Public Use
  Company Number: US-JAZZ-2018-US-003560

PATIENT
  Age: 62 Year
  Sex: Female

DRUGS (19)
  1. DEPAKOTE [Concomitant]
     Active Substance: DIVALPROEX SODIUM
  2. PROPRANOLOL [Concomitant]
     Active Substance: PROPRANOLOL HYDROCHLORIDE
  3. ABILIFY [Concomitant]
     Active Substance: ARIPIPRAZOLE
  4. XYREM [Suspect]
     Active Substance: SODIUM OXYBATE
     Dosage: UNKNOWN DOSE
     Route: 048
     Dates: start: 20180304, end: 201803
  5. ADDERALL [Concomitant]
     Active Substance: AMPHETAMINE ASPARTATE\AMPHETAMINE SULFATE\DEXTROAMPHETAMINE SACCHARATE\DEXTROAMPHETAMINE SULFATE
  6. ASPIRIN 81 [Concomitant]
     Active Substance: ASPIRIN
  7. BUSPIRONE HCL [Concomitant]
     Active Substance: BUSPIRONE HYDROCHLORIDE
  8. WARFARIN SODIUM. [Concomitant]
     Active Substance: WARFARIN SODIUM
  9. FUROSEMIDE. [Concomitant]
     Active Substance: FUROSEMIDE
  10. MYRBETRIQ [Concomitant]
     Active Substance: MIRABEGRON
  11. ATORVASTATIN [Concomitant]
     Active Substance: ATORVASTATIN
  12. TRIMETHOPRIM. [Concomitant]
     Active Substance: TRIMETHOPRIM
  13. LEVOTHYROXINE. [Concomitant]
     Active Substance: LEVOTHYROXINE
  14. RESTASIS [Concomitant]
     Active Substance: CYCLOSPORINE
  15. XYREM [Suspect]
     Active Substance: SODIUM OXYBATE
     Dosage: 2.5 G, BID
     Route: 048
     Dates: start: 201803
  16. MODAFINIL. [Concomitant]
     Active Substance: MODAFINIL
  17. XYREM [Suspect]
     Active Substance: SODIUM OXYBATE
     Indication: NARCOLEPSY
     Dosage: 1.5 G, BID
     Route: 048
     Dates: start: 201802, end: 2018
  18. HALOPERIDOL. [Concomitant]
     Active Substance: HALOPERIDOL
  19. PROZAC [Concomitant]
     Active Substance: FLUOXETINE HYDROCHLORIDE

REACTIONS (12)
  - Dizziness [Unknown]
  - Urinary tract infection [Unknown]
  - Fatigue [Not Recovered/Not Resolved]
  - Pyrexia [Unknown]
  - Gait disturbance [Not Recovered/Not Resolved]
  - Fall [Recovered/Resolved]
  - Migraine [Unknown]
  - Dehydration [Unknown]
  - Pollakiuria [Not Recovered/Not Resolved]
  - Somnolence [Not Recovered/Not Resolved]
  - Tremor [Not Recovered/Not Resolved]
  - Condition aggravated [Not Recovered/Not Resolved]

NARRATIVE: CASE EVENT DATE: 2018
